FAERS Safety Report 8804179 (Version 2)
Quarter: 2012Q4

REPORT INFORMATION
  Report Type: 
  Country: US (occurrence: US)
  Receive Date: 20120923
  Receipt Date: 20121005
  Transmission Date: 20130627
  Serious: Yes (Hospitalization)
  Sender: FDA-Public Use
  Company Number: US-BIOGENIDEC-2012BI037966

PATIENT
  Age: 40 Year
  Sex: Female

DRUGS (4)
  1. TYSABRI [Suspect]
     Indication: MULTIPLE SCLEROSIS
     Route: 042
     Dates: start: 20090402, end: 20120816
  2. ZONEGRAN [Concomitant]
  3. LORAZEPAM [Concomitant]
  4. CANNABIS SATIVA SUBSP. INDICA TOP [Concomitant]

REACTIONS (1)
  - Dementia [Recovered/Resolved]
